FAERS Safety Report 12654369 (Version 1)
Quarter: 2016Q3

REPORT INFORMATION
  Report Type: Spontaneous
  Country: US (occurrence: None)
  Receive Date: 20160815
  Receipt Date: 20160815
  Transmission Date: 20161109
  Serious: No
  Sender: FDA-Public Use
  Company Number: None

PATIENT
  Age: 46 Year
  Sex: Female

DRUGS (3)
  1. BOTOX [Suspect]
     Active Substance: ONABOTULINUMTOXINA
     Indication: SYSTEMIC LUPUS ERYTHEMATOSUS
     Dosage: BOTOX 100 UNITS 400 UNITS IM
     Route: 030
  2. BOTOX [Suspect]
     Active Substance: ONABOTULINUMTOXINA
     Indication: TORTICOLLIS
     Dosage: BOTOX 100 UNITS 400 UNITS IM
     Route: 030
  3. MYCOPHENOLATE MOF TAB 500MG [Suspect]
     Active Substance: MYCOPHENOLATE MOFETIL
     Indication: SYSTEMIC LUPUS ERYTHEMATOSUS
     Route: 048

REACTIONS (5)
  - Feeling abnormal [None]
  - Arthritis [None]
  - Autoimmune hepatitis [None]
  - Vertigo [None]
  - Balance disorder [None]

NARRATIVE: CASE EVENT DATE: 20160801
